FAERS Safety Report 15481279 (Version 2)
Quarter: 2018Q4

REPORT INFORMATION
  Report Type: Spontaneous
  Country: FR (occurrence: FR)
  Receive Date: 20181010
  Receipt Date: 20181025
  Transmission Date: 20190205
  Serious: Yes (Hospitalization, Other)
  Sender: FDA-Public Use
  Company Number: FR-AUROBINDO-AUR-APL-2018-048992

PATIENT
  Age: 69 Year
  Sex: Male

DRUGS (3)
  1. LAMOTRIGINE ARROW [Suspect]
     Active Substance: LAMOTRIGINE
     Indication: BIPOLAR DISORDER
     Dosage: 50 MILLIGRAM, DAILY
     Route: 048
     Dates: start: 20180914, end: 20180917
  2. OLANZAPINE ARROW [Suspect]
     Active Substance: OLANZAPINE
     Indication: FRONTOTEMPORAL DEMENTIA
     Dosage: 10 MILLIGRAM, DAILY
     Route: 048
     Dates: start: 20180914, end: 20180917
  3. SERESTA [Suspect]
     Active Substance: OXAZEPAM
     Indication: FRONTOTEMPORAL DEMENTIA
     Dosage: 75 MILLIGRAM, DAILY
     Route: 048
     Dates: start: 20180908, end: 20180917

REACTIONS (1)
  - Neuroleptic malignant syndrome [Recovered/Resolved]

NARRATIVE: CASE EVENT DATE: 20180917
